FAERS Safety Report 11414701 (Version 3)
Quarter: 2015Q3

REPORT INFORMATION
  Report Type: Spontaneous
  Country: CA (occurrence: CA)
  Receive Date: 20150825
  Receipt Date: 20150831
  Transmission Date: 20151125
  Serious: Yes (Life-Threatening, Hospitalization, Other)
  Sender: FDA-Public Use
  Company Number: CA-ROCHE-1623668

PATIENT
  Sex: Female

DRUGS (21)
  1. ONCOVIN [Suspect]
     Active Substance: VINCRISTINE SULFATE
     Indication: NON-HODGKIN^S LYMPHOMA
     Route: 042
     Dates: start: 2010
  2. PREDNISONE. [Suspect]
     Active Substance: PREDNISONE
     Dosage: 4 CYCLES
     Route: 042
     Dates: start: 201211
  3. GABAPENTIN. [Concomitant]
     Active Substance: GABAPENTIN
     Dosage: 2YRS
     Route: 065
  4. ONBREZ [Concomitant]
     Active Substance: INDACATEROL
     Dosage: 5YRS
     Route: 065
  5. DOXORUBICIN [Suspect]
     Active Substance: DOXORUBICIN
     Indication: NON-HODGKIN^S LYMPHOMA
     Route: 042
     Dates: start: 2010
  6. ASA [Concomitant]
     Active Substance: ASPIRIN
     Dosage: 81 - 5YRS
     Route: 065
  7. VENTOLIN [Concomitant]
     Active Substance: ALBUTEROL SULFATE
     Dosage: COUPLE YEARS
     Route: 065
  8. RITUXAN [Suspect]
     Active Substance: RITUXIMAB
     Indication: NON-HODGKIN^S LYMPHOMA
     Route: 042
     Dates: start: 2010
  9. RITUXAN [Suspect]
     Active Substance: RITUXIMAB
     Dosage: 4 CYCLES
     Route: 042
     Dates: start: 201211
  10. CYCLOPHOSPHAMIDE. [Suspect]
     Active Substance: CYCLOPHOSPHAMIDE
     Indication: NON-HODGKIN^S LYMPHOMA
     Route: 042
     Dates: start: 2010
  11. DOXORUBICIN [Suspect]
     Active Substance: DOXORUBICIN
     Dosage: 4 CYCLES
     Route: 042
     Dates: start: 201211
  12. LORAZEPAM. [Concomitant]
     Active Substance: LORAZEPAM
     Dosage: COUPLE YEARS
     Route: 065
  13. SEEBRI [Concomitant]
     Active Substance: GLYCOPYRRONIUM
     Dosage: 5YRS
     Route: 065
  14. ONCOVIN [Suspect]
     Active Substance: VINCRISTINE SULFATE
     Dosage: 4 CYCLES
     Route: 042
     Dates: start: 201211
  15. PREDNISONE. [Suspect]
     Active Substance: PREDNISONE
     Indication: NON-HODGKIN^S LYMPHOMA
     Route: 042
     Dates: start: 2010
  16. OLANZAPINE. [Suspect]
     Active Substance: OLANZAPINE
     Indication: PRODUCT USED FOR UNKNOWN INDICATION
     Route: 065
     Dates: start: 2015, end: 2015
  17. ESSIAC HERB [Concomitant]
     Dosage: 3-4YRS
     Route: 065
  18. CIPRALEX [Concomitant]
     Active Substance: ESCITALOPRAM OXALATE
     Dosage: 2YRS
     Route: 065
  19. DILANTIN [Concomitant]
     Active Substance: PHENYTOIN
     Dosage: 5YRS
     Route: 065
  20. CYCLOPHOSPHAMIDE. [Suspect]
     Active Substance: CYCLOPHOSPHAMIDE
     Dosage: 4 CYCLES
     Route: 042
     Dates: start: 201211
  21. BISOPROLOL [Concomitant]
     Active Substance: BISOPROLOL
     Dosage: BEFORE 2010
     Route: 065

REACTIONS (12)
  - Depression [Unknown]
  - Seizure [Unknown]
  - Lung neoplasm malignant [Unknown]
  - Dizziness [Unknown]
  - Pneumonia [Unknown]
  - Coma [Unknown]
  - Gastrointestinal disorder [Unknown]
  - Chronic obstructive pulmonary disease [Unknown]
  - Paranoia [Unknown]
  - Respiratory failure [Unknown]
  - Brain injury [Unknown]
  - Septic shock [Unknown]

NARRATIVE: CASE EVENT DATE: 2010
